FAERS Safety Report 20904209 (Version 3)
Quarter: 2022Q3

REPORT INFORMATION
  Report Type: Other
  Country: ES (occurrence: ES)
  Receive Date: 20220602
  Receipt Date: 20220802
  Transmission Date: 20221027
  Serious: Yes (Hospitalization, Other)
  Sender: FDA-Public Use
  Company Number: ES-002147023-NVSC2022ES114593

PATIENT
  Age: 47 Year
  Sex: Male

DRUGS (5)
  1. RITUXAN [Suspect]
     Active Substance: RITUXIMAB
     Indication: Follicular lymphoma
     Dosage: 375 MG/M2, CYCLIC (BIMONTHLY), MAINTENANCE TREATMENT WITH RITUXIMAB
     Route: 042
     Dates: start: 202010
  2. RITUXAN [Suspect]
     Active Substance: RITUXIMAB
     Dosage: 375 MG/M2, CYCLIC (ONCE EVERY 21DAYS)
     Route: 042
     Dates: start: 202004, end: 202008
  3. RITUXAN [Suspect]
     Active Substance: RITUXIMAB
     Dosage: UNK, CYCLIC (FOURTH DOSE)
     Route: 042
     Dates: start: 202105
  4. RITUXAN [Suspect]
     Active Substance: RITUXIMAB
     Dosage: 375 MG/M2, CYCLIC (SIXTH DOSE)
     Route: 042
     Dates: start: 20211001
  5. RITUXAN [Suspect]
     Active Substance: RITUXIMAB
     Dosage: 375 MG/M2, CYCLIC (5TH DOSE)
     Route: 042
     Dates: start: 20210527

REACTIONS (2)
  - COVID-19 [Recovering/Resolving]
  - Vaccination failure [Unknown]

NARRATIVE: CASE EVENT DATE: 20210701
